FAERS Safety Report 5739705-9 (Version None)
Quarter: 2008Q2

REPORT INFORMATION
  Report Type: 
  Country: None (occurrence: None)
  Receive Date: 20080513
  Receipt Date: 20080430
  Transmission Date: 20081010
  Serious: Yes (Hospitalization)
  Sender: FDA-Public Use
  Company Number: 2008011672

PATIENT
  Sex: Female
  Weight: 56 kg

DRUGS (1)
  1. LISTERINE (MENTHOL, METHYL SALICYLATE, EUCALYPTOL, THYMOL) [Suspect]
     Indication: DENTAL DISORDER PROPHYLAXIS
     Dosage: 20 ML, ONCE, ORAL
     Route: 048
     Dates: start: 20080429, end: 20080429

REACTIONS (3)
  - DIZZINESS [None]
  - HYPERSENSITIVITY [None]
  - SYNCOPE [None]
